FAERS Safety Report 23607370 (Version 1)
Quarter: 2024Q1

REPORT INFORMATION
  Report Type: Spontaneous
  Country: US (occurrence: US)
  Receive Date: 20240307
  Receipt Date: 20240307
  Transmission Date: 20240409
  Serious: No
  Sender: FDA-Public Use
  Company Number: ENDB23-03641

PATIENT
  Age: 34 Year
  Sex: Female
  Weight: 95.238 kg

DRUGS (4)
  1. VITAMINS [Suspect]
     Active Substance: VITAMINS
     Indication: Supplementation therapy
     Dosage: UNK UNKNOWN, UNKNOWN
     Route: 048
     Dates: start: 2023
  2. NASCOBAL [Suspect]
     Active Substance: CYANOCOBALAMIN
     Indication: Supplementation therapy
     Dosage: UNK UNKNOWN, UNKNOWN
     Route: 065
  3. NASCOBAL [Suspect]
     Active Substance: CYANOCOBALAMIN
     Indication: Supplementation therapy
     Dosage: UNK UNKNOWN, UNKNOWN
     Route: 065
  4. NASCOBAL [Suspect]
     Active Substance: CYANOCOBALAMIN
     Indication: Supplementation therapy
     Dosage: UNK UNKNOWN, UNKNOWN
     Route: 065

REACTIONS (2)
  - Gastrointestinal disorder [Not Recovered/Not Resolved]
  - Feeling cold [Not Recovered/Not Resolved]

NARRATIVE: CASE EVENT DATE: 20230901
